FAERS Safety Report 6395031-9 (Version None)
Quarter: 2009Q4

REPORT INFORMATION
  Report Type: 
  Country: None (occurrence: None)
  Receive Date: 20091009
  Receipt Date: 20090930
  Transmission Date: 20100525
  Serious: Yes (Hospitalization)
  Sender: FDA-Public Use
  Company Number: IT-ASTRAZENECA-2009SE17886

PATIENT
  Age: 9507 Day
  Sex: Male

DRUGS (2)
  1. NEXIUM [Suspect]
     Route: 048
     Dates: start: 20090717
  2. LANSOPRAZOLE [Suspect]
     Route: 048
     Dates: start: 20090717

REACTIONS (1)
  - CHOLECYSTITIS ACUTE [None]
